FAERS Safety Report 6460573-4 (Version None)
Quarter: 2009Q4

REPORT INFORMATION
  Report Type: 
  Country: None (occurrence: None)
  Receive Date: 20091130
  Receipt Date: 20091119
  Transmission Date: 20100525
  Serious: Yes (Other)
  Sender: FDA-Public Use
  Company Number: US-ASTRAZENECA-2009SE27617

PATIENT
  Age: 23827 Day
  Sex: Female
  Weight: 57.7 kg

DRUGS (10)
  1. CRESTOR [Suspect]
     Route: 048
     Dates: start: 20071001
  2. CRESTOR [Suspect]
     Route: 048
     Dates: start: 20091001
  3. TOPROL-XL [Concomitant]
     Indication: ASTHMA
     Route: 048
  4. LANTUS [Concomitant]
     Indication: DIABETES MELLITUS
     Route: 065
  5. HUMALOG [Concomitant]
     Indication: DIABETES MELLITUS
     Route: 065
  6. VALIUM [Concomitant]
     Indication: ANXIETY
     Dosage: AS REQUIRED
  7. ALBUTEROL [Concomitant]
     Indication: ASTHMA
  8. NASONEX [Concomitant]
     Indication: MULTIPLE ALLERGIES
  9. NASONEX [Concomitant]
     Indication: ASTHMA
  10. AZMACORT [Concomitant]
     Indication: ASTHMA

REACTIONS (4)
  - ASTHENIA [None]
  - CONVULSION [None]
  - HEADACHE [None]
  - NAUSEA [None]
